FAERS Safety Report 7588607-4 (Version None)
Quarter: 2011Q3

REPORT INFORMATION
  Report Type: 
  Country: None (occurrence: None)
  Receive Date: 20110705
  Receipt Date: 20110629
  Transmission Date: 20111222
  Serious: Yes (Hospitalization)
  Sender: FDA-Public Use
  Company Number: JP-BRISTOL-MYERS SQUIBB COMPANY-14045603

PATIENT
  Age: 38 Year
  Sex: Male

DRUGS (6)
  1. ADVATE [Concomitant]
     Indication: HAEMOPHILIA
     Dosage: INJ;3DAYS/MONTH
     Dates: start: 20070721
  2. RECOMBINATE [Concomitant]
     Indication: HAEMOPHILIA
     Dosage: INJ; 3DAY/MONTH
     Dates: start: 20070401, end: 20070720
  3. NORVIR [Suspect]
     Indication: HIV INFECTION
     Route: 048
     Dates: start: 20040712
  4. VIREAD [Suspect]
     Indication: HIV INFECTION
     Route: 048
     Dates: start: 20040712, end: 20090707
  5. REYATAZ [Suspect]
     Indication: HIV INFECTION
     Dosage: 400MG:17JAN04-11JUL04 (DURATION : 177 DAYS) 300MG:12JUL04-UNKNOWN 300MG/D:01APR2005-07JUL2009
     Route: 048
     Dates: start: 20040117
  6. EPIVIR [Suspect]
     Indication: HIV INFECTION
     Dosage: 150MG 2/1D : 14AUG1998-16JAN2004 300MG 1/1D : 17JAN2004-UNKNOWN 300MGX1/D 01APR2005-07JUL2009
     Route: 048
     Dates: start: 19980814

REACTIONS (3)
  - GASTRIC ULCER [None]
  - GASTROOESOPHAGEAL REFLUX DISEASE [None]
  - HAEMORRHAGE [None]
